FAERS Safety Report 16511463 (Version 1)
Quarter: 2019Q3

REPORT INFORMATION
  Report Type: Spontaneous
  Country: NO (occurrence: NO)
  Receive Date: 20190701
  Receipt Date: 20190701
  Transmission Date: 20191004
  Serious: Yes (Congenital Anomaly, Other)
  Sender: FDA-Public Use
  Company Number: PHHY2019NO147142

PATIENT

DRUGS (1)
  1. LEVETIRACETAM. [Suspect]
     Active Substance: LEVETIRACETAM
     Indication: FOETAL EXPOSURE DURING PREGNANCY
     Dosage: MOTHER DOSE 1000 MG, QD
     Route: 064

REACTIONS (3)
  - Laryngomalacia [Not Recovered/Not Resolved]
  - Cytogenetic abnormality [Not Recovered/Not Resolved]
  - Foetal exposure during pregnancy [Unknown]
